FAERS Safety Report 4701336-7 (Version None)
Quarter: 2005Q2

REPORT INFORMATION
  Report Type: 
  Country: None (occurrence: None)
  Receive Date: 20050627
  Receipt Date: 20050615
  Transmission Date: 20051028
  Serious: Yes (Hospitalization)
  Sender: FDA-Public Use
  Company Number: 2005073178

PATIENT
  Sex: Female
  Weight: 59.8748 kg

DRUGS (6)
  1. ROGAINE [Suspect]
     Indication: ALOPECIA
     Dosage: 1 ML BID, TOPICAL
     Route: 061
  2. ASPIRIN [Concomitant]
  3. LEVOTHYROXINE SODIUM [Concomitant]
  4. CALCIUM (CALCIUM) [Concomitant]
  5. MULTIVITAMINS (ASCORBIC ACID, ERGOCALCIFEROL, FOLIC ACID, NICOTINAMIDE [Concomitant]
  6. MINERALS NOS (MINERALS NOS) [Concomitant]

REACTIONS (5)
  - ALOPECIA [None]
  - BOWEL MOVEMENT IRREGULARITY [None]
  - HEART RATE IRREGULAR [None]
  - LOSS OF CONSCIOUSNESS [None]
  - VOMITING [None]
